FAERS Safety Report 20950780 (Version 1)
Quarter: 2022Q2

REPORT INFORMATION
  Report Type: Report from Study
  Country: IT (occurrence: IT)
  Receive Date: 20220613
  Receipt Date: 20220613
  Transmission Date: 20220721
  Serious: Yes (Other)
  Sender: FDA-Public Use
  Company Number: IT-VIIV HEALTHCARE ULC-IT2022EME090179

PATIENT

DRUGS (1)
  1. DOLUTEGRAVIR SODIUM\RILPIVIRINE HYDROCHLORIDE [Suspect]
     Active Substance: DOLUTEGRAVIR SODIUM\RILPIVIRINE HYDROCHLORIDE
     Indication: HIV infection
     Dosage: UNK
     Dates: start: 20210101

REACTIONS (4)
  - Pathogen resistance [Unknown]
  - Viral mutation identified [Unknown]
  - Virologic failure [Unknown]
  - Drug ineffective [Unknown]

NARRATIVE: CASE EVENT DATE: 20220401
